FAERS Safety Report 21047215 (Version 1)
Quarter: 2022Q3

REPORT INFORMATION
  Report Type: Spontaneous
  Country: US (occurrence: None)
  Receive Date: 20220705
  Receipt Date: 20220705
  Transmission Date: 20221027
  Serious: No
  Sender: FDA-Public Use
  Company Number: None

PATIENT
  Age: 26 Year
  Sex: Female
  Weight: 117.93 kg

DRUGS (1)
  1. TALTZ [Suspect]
     Active Substance: IXEKIZUMAB
     Indication: Spondyloarthropathy
     Dosage: FREQUENCY : MONTHLY;?
     Route: 058
     Dates: start: 202205

REACTIONS (3)
  - Urinary tract infection [None]
  - Injection site pain [None]
  - Feeling abnormal [None]
